FAERS Safety Report 16778719 (Version 1)
Quarter: 2019Q3

REPORT INFORMATION
  Report Type: Spontaneous
  Country: US (occurrence: US)
  Receive Date: 20190906
  Receipt Date: 20190906
  Transmission Date: 20191005
  Serious: No
  Sender: FDA-Public Use
  Company Number: US-CIPLA LTD.-2019US02713

PATIENT

DRUGS (1)
  1. MELOXICAM. [Suspect]
     Active Substance: MELOXICAM
     Indication: OSTEOARTHRITIS
     Dosage: 15 MILLIGRAM, UNK
     Route: 065
     Dates: start: 2009, end: 20190415

REACTIONS (2)
  - Adverse reaction [Recovered/Resolved]
  - Malaise [Recovered/Resolved]
